FAERS Safety Report 9241656 (Version 1)
Quarter: 2013Q2

REPORT INFORMATION
  Report Type: Spontaneous
  Country: JP (occurrence: JP)
  Receive Date: 20130419
  Receipt Date: 20130419
  Transmission Date: 20140414
  Serious: Yes (Hospitalization)
  Sender: FDA-Public Use
  Company Number: JP-AMGEN-JPNSP2013026957

PATIENT
  Age: 58 Year
  Sex: Female

DRUGS (4)
  1. ENBREL [Suspect]
     Indication: RHEUMATOID ARTHRITIS
     Dosage: UNK
  2. PREDNISOLONE [Concomitant]
     Dosage: UNK
     Dates: end: 201007
  3. PREDNISOLONE [Concomitant]
     Dosage: 50 MG, UNK
  4. PREDNISOLONE [Concomitant]
     Dosage: 10 MG, UNK
     Dates: start: 201210

REACTIONS (1)
  - Nephritis [Recovering/Resolving]
